FAERS Safety Report 18649129 (Version 1)
Quarter: 2020Q4

REPORT INFORMATION
  Report Type: Spontaneous
  Country: US (occurrence: US)
  Receive Date: 20201222
  Receipt Date: 20201222
  Transmission Date: 20210114
  Serious: Yes (Hospitalization)
  Sender: FDA-Public Use
  Company Number: None

PATIENT
  Age: 62 Year
  Sex: Female
  Weight: 88.5 kg

DRUGS (2)
  1. REMDESIVIR. [Concomitant]
     Active Substance: REMDESIVIR
     Dates: start: 20201207, end: 20201211
  2. BARICITINIB. [Suspect]
     Active Substance: BARICITINIB
     Indication: COVID-19
     Route: 048
     Dates: start: 20201207, end: 20201216

REACTIONS (5)
  - Respiratory failure [None]
  - Cerebrovascular accident [None]
  - Intentional product use issue [None]
  - Thrombocytosis [None]
  - Therapy cessation [None]

NARRATIVE: CASE EVENT DATE: 20201209
